FAERS Safety Report 25035757 (Version 2)
Quarter: 2025Q1

REPORT INFORMATION
  Report Type: Spontaneous
  Country: SA (occurrence: EG)
  Receive Date: 20250304
  Receipt Date: 20250305
  Transmission Date: 20250409
  Serious: Yes (Other)
  Sender: ABBVIE
  Company Number: EG-ABBVIE-6158184

PATIENT
  Age: 45 Year
  Sex: Female

DRUGS (2)
  1. OZURDEX [Suspect]
     Active Substance: DEXAMETHASONE
     Indication: Diabetic retinal oedema
     Route: 050
  2. OZURDEX [Suspect]
     Active Substance: DEXAMETHASONE
     Route: 050
     Dates: start: 20230404

REACTIONS (4)
  - Visual impairment [Recovering/Resolving]
  - Posterior capsule opacification [Recovering/Resolving]
  - Corneal oedema [Recovered/Resolved]
  - Device dislocation [Recovering/Resolving]
